FAERS Safety Report 19147192 (Version 6)
Quarter: 2022Q1

REPORT INFORMATION
  Report Type: Report from Study
  Country: RU (occurrence: RU)
  Receive Date: 20210416
  Receipt Date: 20220217
  Transmission Date: 20220423
  Serious: No
  Sender: FDA-Public Use
  Company Number: RU-ALLERGAN-2115034US

PATIENT
  Age: 16 Year
  Sex: Female
  Weight: 50.5 kg

DRUGS (6)
  1. CARIPRAZINE HYDROCHLORIDE [Suspect]
     Active Substance: CARIPRAZINE HYDROCHLORIDE
     Indication: Schizophrenia
     Dosage: 3 MG, QD
     Route: 048
     Dates: start: 20210310
  2. CARIPRAZINE HYDROCHLORIDE [Suspect]
     Active Substance: CARIPRAZINE HYDROCHLORIDE
     Dosage: 1.5 MG, QD
     Route: 048
     Dates: start: 20210213, end: 20210309
  3. CARIPRAZINE HYDROCHLORIDE [Suspect]
     Active Substance: CARIPRAZINE HYDROCHLORIDE
     Dosage: 0.5 MG, QD
     Route: 048
     Dates: start: 20210210, end: 20210212
  4. QUETIAPINE [Concomitant]
     Active Substance: QUETIAPINE
     Indication: Product used for unknown indication
     Dosage: 100 MG
     Dates: start: 20210210, end: 20210212
  5. QUETIAPINE [Concomitant]
     Active Substance: QUETIAPINE
     Dosage: 200 MG
     Dates: start: 20201009, end: 20210209
  6. FLUVOXAMINE [Concomitant]
     Active Substance: FLUVOXAMINE
     Indication: Product used for unknown indication
     Dosage: 100 MG, QHS
     Dates: start: 20201009

REACTIONS (1)
  - Accommodation disorder [Recovered/Resolved]

NARRATIVE: CASE EVENT DATE: 20210315
